FAERS Safety Report 6184817-1 (Version None)
Quarter: 2009Q2

REPORT INFORMATION
  Report Type: 
  Country: None (occurrence: None)
  Receive Date: 20090508
  Receipt Date: 20090424
  Transmission Date: 20091009
  Serious: Yes (Hospitalization, Other)
  Sender: FDA-Public Use
  Company Number: AU-GENENTECH-233004

PATIENT
  Sex: Male
  Weight: 67 kg

DRUGS (5)
  1. BEVACIZUMAB [Suspect]
     Indication: COLORECTAL CANCER METASTATIC
     Dosage: 500 MG, Q3W
     Route: 042
     Dates: start: 20061013
  2. CAPECITABINE [Suspect]
     Indication: COLORECTAL CANCER METASTATIC
     Dosage: 3600 MG, Q3W
     Route: 048
     Dates: start: 20061013
  3. MITOMYCIN [Suspect]
     Indication: COLORECTAL CANCER METASTATIC
     Dosage: 12.5 MG, Q6W
     Route: 065
     Dates: start: 20061013
  4. NIZATIDINE [Concomitant]
     Indication: DRUG USE FOR UNKNOWN INDICATION
     Dosage: UNK, UNK
     Dates: start: 20060815
  5. LISINOPRIL [Concomitant]
     Indication: DRUG USE FOR UNKNOWN INDICATION
     Dosage: UNK, UNK
     Dates: start: 19980615

REACTIONS (3)
  - ILEUS PARALYTIC [None]
  - INTESTINAL OBSTRUCTION [None]
  - MALIGNANT HYPERTENSION [None]
